FAERS Safety Report 14608575 (Version 1)
Quarter: 2018Q1

REPORT INFORMATION
  Report Type: Spontaneous
  Country: US (occurrence: US)
  Receive Date: 20180306
  Receipt Date: 20180306
  Transmission Date: 20180509
  Serious: No
  Sender: FDA-Public Use
  Company Number: None

PATIENT
  Age: 60 Year
  Sex: Female
  Weight: 82.8 kg

DRUGS (5)
  1. RESTASIS [Suspect]
     Active Substance: CYCLOSPORINE
     Indication: DRY EYE
     Dosage: ?          QUANTITY:90 DROP(S);OTHER ROUTE:EYE DROPS?
     Dates: start: 20180303, end: 20180305
  2. VITAMIN D [Concomitant]
     Active Substance: CHOLECALCIFEROL
  3. NOVOLOG [Concomitant]
     Active Substance: INSULIN ASPART
  4. CYMBALTA [Concomitant]
     Active Substance: DULOXETINE HYDROCHLORIDE
  5. FIBER GUMMIES [Concomitant]

REACTIONS (3)
  - Vertigo [None]
  - Saccadic eye movement [None]
  - Fear of falling [None]

NARRATIVE: CASE EVENT DATE: 20180305
